FAERS Safety Report 23627259 (Version 2)
Quarter: 2024Q2

REPORT INFORMATION
  Report Type: Report from Study
  Country: US (occurrence: US)
  Receive Date: 20240313
  Receipt Date: 20240606
  Transmission Date: 20240716
  Serious: No
  Sender: FDA-Public Use
  Company Number: US-SPRINGWORKS THERAPEUTICS-SW-001328

PATIENT
  Age: 37 Year
  Sex: Male
  Weight: 90.703 kg

DRUGS (1)
  1. NIROGACESTAT [Suspect]
     Active Substance: NIROGACESTAT
     Indication: Product used for unknown indication
     Dosage: 150.0 MILLIGRAM, BID
     Route: 048
     Dates: start: 20240125

REACTIONS (6)
  - Somnolence [Unknown]
  - Productive cough [Unknown]
  - Pneumonia [Unknown]
  - Bowel movement irregularity [Unknown]
  - Intentional dose omission [Unknown]
  - Product use issue [Unknown]

NARRATIVE: CASE EVENT DATE: 20240214
